FAERS Safety Report 9454121 (Version 2)
Quarter: 2013Q3

REPORT INFORMATION
  Report Type: Spontaneous
  Country: US (occurrence: US)
  Receive Date: 20130812
  Receipt Date: 20130816
  Transmission Date: 20140515
  Serious: No
  Sender: FDA-Public Use
  Company Number: US-009507513-1307USA016758

PATIENT
  Age: 32 Year
  Sex: Male

DRUGS (1)
  1. ASMANEX TWISTHALER [Suspect]
     Indication: ASTHMA
     Dosage: ONE INHALATION ONCE A DAY
     Route: 055
     Dates: start: 201307

REACTIONS (4)
  - Chest discomfort [Recovered/Resolved]
  - Drug dose omission [Unknown]
  - Product container issue [Unknown]
  - Accidental overdose [Unknown]
